FAERS Safety Report 9519294 (Version 1)
Quarter: 2013Q1

REPORT INFORMATION
  Report Type: Spontaneous
  Country: US (occurrence: None)
  Receive Date: 20130305
  Receipt Date: 20130305
  Transmission Date: 20140127
  Serious: Yes (Other)
  Sender: FDA-Public Use
  Company Number: 163-21880-12103886

PATIENT
  Age: 77 Year
  Sex: Male

DRUGS (10)
  1. REVLIMID [Suspect]
     Indication: PLASMA CELL MYELOMA
     Dosage: 21 IN 28 D
     Route: 048
     Dates: start: 20120912
  2. ASPIRIN (ACETYLSALICYLIC ACID) [Concomitant]
  3. VIT B12 (CYANOCOBALAMIN) [Concomitant]
  4. BETHANECHOL [Concomitant]
  5. FUROSEMIDE (FUROSEMIDE) [Concomitant]
  6. LISINOPRIL (LISINOPRIL) [Concomitant]
  7. MELOXICAM (MELOXICAM) [Concomitant]
  8. METOPROLOL (METOPROLOL) [Concomitant]
  9. PREVACID (LANSOPRAZOLE) [Concomitant]
  10. ZOCOR (SIMVASTATIN) [Concomitant]

REACTIONS (1)
  - Drug intolerance [None]
